FAERS Safety Report 8848070 (Version 3)
Quarter: 2012Q4

REPORT INFORMATION
  Report Type: Report from Study
  Country: JP (occurrence: JP)
  Receive Date: 20121018
  Receipt Date: 20121226
  Transmission Date: 20130627
  Serious: Yes (Hospitalization)
  Sender: FDA-Public Use
  Company Number: JP-VERTEX PHARMACEUTICAL INC.-2012-023056

PATIENT
  Age: 63 Year
  Sex: Female

DRUGS (11)
  1. VX-950 (TELAPREVIR) [Suspect]
     Indication: CHRONIC HEPATITIS C
     Dosage: 1500 mg, qd
     Route: 048
     Dates: start: 20120405, end: 20120626
  2. REBETOL [Suspect]
     Indication: CHRONIC HEPATITIS C
     Dosage: 400 mg, qd
     Route: 048
     Dates: start: 20120405, end: 20120425
  3. REBETOL [Suspect]
     Dosage: 200 mg, qd
     Route: 048
     Dates: start: 20120426, end: 20120828
  4. REBETOL [Suspect]
     Dosage: 400 mg, qd
     Route: 048
     Dates: start: 20120829, end: 20120910
  5. PEGINTERFERON ALFA-2B [Suspect]
     Indication: CHRONIC HEPATITIS C
     Dosage: 1.5 ?g/kg, qw
     Route: 058
     Dates: start: 20120405, end: 20120905
  6. AMLODIPINE                         /00972402/ [Concomitant]
     Dosage: 5 mg, qd
     Route: 048
  7. OMEPRAL /00661201/ [Concomitant]
     Dosage: 20 mg, qd
     Route: 048
  8. TERNELIN [Concomitant]
     Dosage: 1 mg, qd
     Route: 048
  9. LOXONIN [Concomitant]
     Dosage: 60 mg, qd
     Route: 048
  10. KENTAN [Concomitant]
     Dosage: 60 mg, qd
     Route: 048
  11. SELBEX [Concomitant]
     Dosage: 1.5 g, qd
     Route: 048
     Dates: start: 20120405

REACTIONS (1)
  - Depression [Not Recovered/Not Resolved]
